FAERS Safety Report 22120322 (Version 1)
Quarter: 2023Q1

REPORT INFORMATION
  Report Type: Spontaneous
  Country: US (occurrence: None)
  Receive Date: 20230321
  Receipt Date: 20230321
  Transmission Date: 20230418
  Serious: No
  Sender: FDA-Public Use
  Company Number: US-ROCHE-3223555

PATIENT

DRUGS (1)
  1. EVRYSDI [Suspect]
     Active Substance: RISDIPLAM
     Indication: Product used for unknown indication
     Route: 065

REACTIONS (6)
  - Product leakage [Unknown]
  - Product container seal issue [Unknown]
  - Product packaging quantity issue [Unknown]
  - Product dose omission issue [Unknown]
  - No adverse event [Unknown]
  - Product container issue [Unknown]
